FAERS Safety Report 8043738-X (Version None)
Quarter: 2012Q1

REPORT INFORMATION
  Report Type: 
  Country: None (occurrence: None)
  Receive Date: 20120113
  Receipt Date: 20120106
  Transmission Date: 20120608
  Serious: Yes (Other)
  Sender: FDA-Public Use
  Company Number: US-BIOGENIDEC-2010BI031354

PATIENT
  Age: 45 Year
  Sex: Female

DRUGS (4)
  1. AVONEX [Suspect]
     Route: 030
     Dates: start: 20030101
  2. IBUPROFEN [Concomitant]
  3. AVONEX [Suspect]
     Indication: MULTIPLE SCLEROSIS
     Route: 030
     Dates: start: 20010910, end: 20030101
  4. ACETAMINOPHEN [Concomitant]

REACTIONS (5)
  - EPIGASTRIC DISCOMFORT [None]
  - CHOKING SENSATION [None]
  - OESOPHAGEAL IRRITATION [None]
  - MULTIPLE SCLEROSIS RELAPSE [None]
  - EPILEPSY [None]
